FAERS Safety Report 5377424-1 (Version None)
Quarter: 2007Q3

REPORT INFORMATION
  Report Type: 
  Country: None (occurrence: None)
  Receive Date: 20070703
  Receipt Date: 20070703
  Transmission Date: 20080115
  Serious: Yes (Other)
  Sender: FDA-Public Use
  Company Number: B0477345B

PATIENT
  Age: 1 Day
  Sex: Male

DRUGS (2)
  1. PAROXETINE HCL [Suspect]
     Indication: DRUG USE FOR UNKNOWN INDICATION
     Dosage: 30MG PER DAY
     Dates: start: 20060101, end: 20061223
  2. INSULIN [Concomitant]

REACTIONS (7)
  - APGAR SCORE LOW [None]
  - CONVULSION [None]
  - DILATATION VENTRICULAR [None]
  - DRUG EXPOSURE DURING PREGNANCY [None]
  - HYPERTROPHY [None]
  - HYPOGLYCAEMIA [None]
  - PULMONARY HYPERTENSION [None]
